FAERS Safety Report 8087011-2 (Version None)
Quarter: 2012Q1

REPORT INFORMATION
  Report Type: 
  Country: None (occurrence: None)
  Receive Date: 20120128
  Receipt Date: 20110522
  Transmission Date: 20120608
  Serious: No
  Sender: FDA-Public Use
  Company Number: US-ABBOTT-11P-163-0727622-00

PATIENT
  Age: 56 Year
  Sex: Female

DRUGS (3)
  1. UNKNOWN MEDICATION [Concomitant]
     Indication: HORMONE REPLACEMENT THERAPY
  2. HUMIRA [Suspect]
     Indication: CROHN'S DISEASE
     Dates: start: 20110304
  3. UNKNOWN MEDICATION [Concomitant]
     Indication: HYSTERECTOMY

REACTIONS (2)
  - DECREASED APPETITE [None]
  - WEIGHT DECREASED [None]
